FAERS Safety Report 8020037-3 (Version None)
Quarter: 2012Q1

REPORT INFORMATION
  Report Type: 
  Country: None (occurrence: None)
  Receive Date: 20120103
  Receipt Date: 20111227
  Transmission Date: 20120608
  Serious: Yes (Other)
  Sender: FDA-Public Use
  Company Number: US-TEVA-314960USA

PATIENT
  Sex: Male

DRUGS (2)
  1. AMPHETAMINE AND DEXTROAMPHETAMINE SALTS [Suspect]
     Indication: DEPRESSION SUICIDAL
     Dates: start: 20050101
  2. SELEGILINE [Concomitant]

REACTIONS (9)
  - INFLUENZA LIKE ILLNESS [None]
  - DIZZINESS [None]
  - PYREXIA [None]
  - ASTHENIA [None]
  - MEMORY IMPAIRMENT [None]
  - SUICIDAL IDEATION [None]
  - PAIN [None]
  - DRUG INEFFECTIVE [None]
  - DEPRESSION [None]
